FAERS Safety Report 9295319 (Version 2)
Quarter: 2013Q2

REPORT INFORMATION
  Report Type: Spontaneous
  Country: JP (occurrence: JP)
  Receive Date: 20130517
  Receipt Date: 20130521
  Transmission Date: 20140414
  Serious: Yes (Other)
  Sender: FDA-Public Use
  Company Number: JP-PFIZER INC-2013151454

PATIENT
  Sex: 0

DRUGS (1)
  1. LYRICA [Suspect]
     Route: 048

REACTIONS (1)
  - Retinal haemorrhage [Unknown]
